FAERS Safety Report 7968726-0 (Version None)
Quarter: 2011Q4

REPORT INFORMATION
  Report Type: 
  Country: None (occurrence: None)
  Receive Date: 20111208
  Receipt Date: 20111124
  Transmission Date: 20120403
  Serious: Yes (Hospitalization)
  Sender: FDA-Public Use
  Company Number: 11-771

PATIENT
  Age: 54 Year
  Sex: Female
  Weight: 53 kg

DRUGS (3)
  1. COTRIM DS [Suspect]
     Indication: URINARY TRACT INFECTION
     Dosage: 960MG/QD/ORAL
     Route: 048
     Dates: start: 20110513, end: 20110515
  2. IBUPROFEN [Suspect]
     Indication: OSTEOARTHRITIS
     Dosage: 600MG/PRN/ORAL
     Route: 048
  3. IBUPROFEN [Suspect]
     Indication: PAIN
     Dosage: 600MG/PRN/ORAL
     Route: 048

REACTIONS (2)
  - HEPATITIS ACUTE [None]
  - URINARY TRACT INFECTION [None]
